FAERS Safety Report 7668024-9 (Version None)
Quarter: 2011Q3

REPORT INFORMATION
  Report Type: 
  Country: None (occurrence: None)
  Receive Date: 20110808
  Receipt Date: 20110803
  Transmission Date: 20111222
  Serious: No
  Sender: FDA-Public Use
  Company Number: US-PFIZER INC-2011177905

PATIENT
  Sex: Male

DRUGS (5)
  1. LEVITRA [Concomitant]
     Dosage: UNK
  2. NIFEDIPINE [Suspect]
     Indication: HYPERTENSION
     Dosage: 60 MG, 1X/DAY
     Route: 048
     Dates: start: 20110328
  3. DIGOXIN [Concomitant]
     Dosage: UNK
  4. PLAVIX [Concomitant]
     Dosage: UNK
  5. METOLAZONE [Concomitant]
     Dosage: UNK

REACTIONS (2)
  - FAECES DISCOLOURED [None]
  - MEDICATION RESIDUE [None]
